FAERS Safety Report 18179682 (Version 2)
Quarter: 2020Q4

REPORT INFORMATION
  Report Type: Spontaneous
  Country: CA (occurrence: CA)
  Receive Date: 20200821
  Receipt Date: 20201001
  Transmission Date: 20210113
  Serious: Yes (Other)
  Sender: FDA-Public Use
  Company Number: CA-ACCORD-196237

PATIENT
  Age: 42 Year
  Sex: Female
  Weight: 81 kg

DRUGS (37)
  1. LEFLUNOMIDE. [Suspect]
     Active Substance: LEFLUNOMIDE
     Indication: PRODUCT USED FOR UNKNOWN INDICATION
  2. TOCOPHEROL [Concomitant]
     Active Substance: TOCOPHEROL
  3. TOCOPHEROL [Concomitant]
     Active Substance: TOCOPHEROL
  4. PARACETAMOL [Suspect]
     Active Substance: ACETAMINOPHEN
     Indication: PRODUCT USED FOR UNKNOWN INDICATION
  5. CIMZIA [Suspect]
     Active Substance: CERTOLIZUMAB PEGOL
     Indication: RHEUMATOID ARTHRITIS
     Dosage: SOLUTION SUBCUTANEOUS SINGLE-USE PREFILLED SYRINGE
     Route: 058
  6. OXYCODONE HYDROCHLORIDE/PARACETAMOL [Suspect]
     Active Substance: ACETAMINOPHEN\OXYCODONE HYDROCHLORIDE
     Indication: PRODUCT USED FOR UNKNOWN INDICATION
  7. COLECALCIFEROL [Concomitant]
     Active Substance: CHOLECALCIFEROL
  8. COENZYME Q10 [Concomitant]
     Active Substance: DIETARY SUPPLEMENT\UBIDECARENONE
  9. ZOPICLONE [Concomitant]
     Active Substance: ZOPICLONE
  10. CHLORHEXIDINE [Suspect]
     Active Substance: CHLORHEXIDINE
     Indication: PRODUCT USED FOR UNKNOWN INDICATION
  11. FISH OIL [Concomitant]
     Active Substance: FISH OIL
  12. TYLENOL [Concomitant]
     Active Substance: ACETAMINOPHEN
  13. ARAVA [Suspect]
     Active Substance: LEFLUNOMIDE
     Indication: PRODUCT USED FOR UNKNOWN INDICATION
  14. ENBREL [Suspect]
     Active Substance: ETANERCEPT
     Indication: RHEUMATOID ARTHRITIS
  15. ERGOCALCIFEROL. [Concomitant]
     Active Substance: ERGOCALCIFEROL
  16. PANTOLOC [Concomitant]
     Active Substance: PANTOPRAZOLE SODIUM
     Dosage: TABLET (ENTERIC- COATED)
  17. ESTRADIOL. [Concomitant]
     Active Substance: ESTRADIOL
  18. REACTINE [Concomitant]
  19. DESOGESTREL AND ETHINYL ESTRADIOL [Concomitant]
     Active Substance: DESOGESTREL\ETHINYL ESTRADIOL
  20. PREDNISONE. [Concomitant]
     Active Substance: PREDNISONE
  21. VENTOLIN [Concomitant]
     Active Substance: ALBUTEROL SULFATE
  22. ASCORBIC ACID. [Concomitant]
     Active Substance: ASCORBIC ACID
  23. ERGOCALCIFEROL. [Concomitant]
     Active Substance: ERGOCALCIFEROL
  24. CETIRIZINE HYDROCHLORIDE. [Concomitant]
     Active Substance: CETIRIZINE HYDROCHLORIDE
  25. PERIOGARD [Suspect]
     Active Substance: CHLORHEXIDINE GLUCONATE
     Indication: PRODUCT USED FOR UNKNOWN INDICATION
  26. CIMZIA [Suspect]
     Active Substance: CERTOLIZUMAB PEGOL
     Indication: RHEUMATOID ARTHRITIS
     Dosage: SOLUTION SUBCUTANEOUS SINGLE-USE PREFILLED SYRINGE
     Route: 058
  27. CHLORAPRED [Suspect]
     Active Substance: CHLORAMPHENICOL\DEXAMETHASONE SODIUM PHOSPHATE
     Indication: PRODUCT USED FOR UNKNOWN INDICATION
     Dosage: SOLUTION TOPICAL ONE STEP
  28. SIMPONI [Suspect]
     Active Substance: GOLIMUMAB
     Indication: PRODUCT USED FOR UNKNOWN INDICATION
     Dosage: SOLUTION SUBCUTANEOUS
     Route: 058
  29. HYDROXYCHLOROQUINE [Concomitant]
     Active Substance: HYDROXYCHLOROQUINE
  30. PANTOPRAZOLE [Concomitant]
     Active Substance: PANTOPRAZOLE
  31. METHOTREXATE. [Suspect]
     Active Substance: METHOTREXATE
     Indication: PRODUCT USED FOR UNKNOWN INDICATION
  32. ACTEMRA [Suspect]
     Active Substance: TOCILIZUMAB
     Indication: PRODUCT USED FOR UNKNOWN INDICATION
  33. ORENCIA [Suspect]
     Active Substance: ABATACEPT
     Indication: PRODUCT USED FOR UNKNOWN INDICATION
  34. OXYCODONE [Suspect]
     Active Substance: OXYCODONE
     Indication: PRODUCT USED FOR UNKNOWN INDICATION
  35. OXYCODONE/ACETAMINO PHEN SANDOZ [Suspect]
     Active Substance: ACETAMINOPHEN\OXYCODONE HYDROCHLORIDE
     Indication: PRODUCT USED FOR UNKNOWN INDICATION
  36. IBUPROFEN. [Concomitant]
     Active Substance: IBUPROFEN
  37. OMEGA-3 ACIDS [Concomitant]
     Active Substance: OMEGA-3 FATTY ACIDS

REACTIONS (21)
  - Body temperature increased [Unknown]
  - Diarrhoea [Unknown]
  - Insomnia [Unknown]
  - Contraindicated product administered [Unknown]
  - Ear pain [Unknown]
  - Peripheral swelling [Unknown]
  - Urticaria [Unknown]
  - Abdominal pain upper [Unknown]
  - Headache [Unknown]
  - Muscle spasticity [Unknown]
  - Respiratory disorder [Unknown]
  - Pruritus [Unknown]
  - Lower respiratory tract infection [Unknown]
  - Asthenia [Unknown]
  - Vomiting [Unknown]
  - Back pain [Unknown]
  - Night sweats [Unknown]
  - Pain [Unknown]
  - Joint swelling [Unknown]
  - Rash [Unknown]
  - Sinusitis [Unknown]
